FAERS Safety Report 7289404-X (Version None)
Quarter: 2011Q1

REPORT INFORMATION
  Report Type: 
  Country: None (occurrence: None)
  Receive Date: 20110211
  Receipt Date: 20110209
  Transmission Date: 20110831
  Serious: Yes (Death, Hospitalization)
  Sender: FDA-Public Use
  Company Number: PHHO2010US19466

PATIENT
  Sex: Female
  Weight: 72.336 kg

DRUGS (1)
  1. AFINITOR [Suspect]
     Indication: BREAST CANCER METASTATIC
     Dosage: UNK

REACTIONS (10)
  - DEATH [None]
  - PNEUMONIA [None]
  - METASTASES TO LIVER [None]
  - DYSPNOEA [None]
  - ASCITES [None]
  - ABDOMINAL PAIN [None]
  - DIARRHOEA [None]
  - PLEURAL EFFUSION [None]
  - NAUSEA [None]
  - VOMITING [None]
